FAERS Safety Report 25584918 (Version 2)
Quarter: 2025Q3

REPORT INFORMATION
  Report Type: Spontaneous
  Country: CA (occurrence: CA)
  Receive Date: 20250721
  Receipt Date: 20250725
  Transmission Date: 20251021
  Serious: Yes (Other)
  Sender: Atnahs Healthcare
  Company Number: CA-ATNAHS-2025-PMNV-CA000089

PATIENT

DRUGS (32)
  1. NAPROXEN [Suspect]
     Active Substance: NAPROXEN
     Indication: Product used for unknown indication
     Route: 065
  2. DIPHENHYDRAMINE [Suspect]
     Active Substance: DIPHENHYDRAMINE
     Indication: Premedication
     Route: 048
  3. METHOTREXATE [Suspect]
     Active Substance: METHOTREXATE
     Indication: Rheumatoid arthritis
     Route: 065
  4. METHOTREXATE SODIUM [Suspect]
     Active Substance: METHOTREXATE SODIUM
     Indication: Rheumatoid arthritis
     Route: 065
  5. GRAVOL [Suspect]
     Active Substance: DIMENHYDRINATE
     Indication: Premedication
     Route: 065
  6. RITUXIMAB [Suspect]
     Active Substance: RITUXIMAB
     Indication: Rheumatoid arthritis
     Route: 042
  7. RITUXIMAB [Suspect]
     Active Substance: RITUXIMAB
     Route: 042
  8. DICLOFENAC [Suspect]
     Active Substance: DICLOFENAC
     Indication: Product used for unknown indication
  9. MELOXICAM [Suspect]
     Active Substance: MELOXICAM
     Indication: Product used for unknown indication
  10. ADVIL [Suspect]
     Active Substance: IBUPROFEN
     Indication: Product used for unknown indication
  11. CELEBREX [Suspect]
     Active Substance: CELECOXIB
     Indication: Product used for unknown indication
  12. VOLTAREN [Suspect]
     Active Substance: DICLOFENAC SODIUM
     Indication: Product used for unknown indication
  13. ACETAMINOPHEN [Concomitant]
     Active Substance: ACETAMINOPHEN
     Indication: Premedication
     Route: 048
  14. ACETAMINOPHEN [Concomitant]
     Active Substance: ACETAMINOPHEN
     Route: 048
  15. ACETAMINOPHEN [Concomitant]
     Active Substance: ACETAMINOPHEN
     Route: 048
  16. METHYLPREDNISOLONE [Concomitant]
     Active Substance: METHYLPREDNISOLONE
     Indication: Premedication
     Route: 042
  17. ADVIL [Concomitant]
     Active Substance: IBUPROFEN
     Indication: Premedication
  18. ARAVA [Concomitant]
     Active Substance: LEFLUNOMIDE
     Indication: Product used for unknown indication
     Dosage: 20 MG, DAILY
     Route: 048
  19. ARAVA [Concomitant]
     Active Substance: LEFLUNOMIDE
     Dosage: 10 MG, DAILY
     Route: 065
  20. ARAVA [Concomitant]
     Active Substance: LEFLUNOMIDE
     Dosage: 10 MG, DAILY
     Route: 065
  21. PANTOPRAZOLE SODIUM [Concomitant]
     Active Substance: PANTOPRAZOLE SODIUM
     Indication: Product used for unknown indication
  22. CETIRIZINE HYDROCHLORIDE [Concomitant]
     Active Substance: CETIRIZINE HYDROCHLORIDE
     Indication: Hypersensitivity
  23. SYNTHROID [Concomitant]
     Active Substance: LEVOTHYROXINE SODIUM
     Indication: Hypothyroidism
  24. VENTOLIN [Concomitant]
     Active Substance: ALBUTEROL SULFATE
     Indication: Product used for unknown indication
  25. AZITHROMYCIN [Concomitant]
     Active Substance: AZITHROMYCIN
     Indication: Anxiety
  26. ESCITALOPRAM [Concomitant]
     Active Substance: ESCITALOPRAM OXALATE
     Indication: Anxiety
     Dosage: 15 MG, DAILY
     Route: 048
  27. FLUTICASONE [Concomitant]
     Active Substance: FLUTICASONE
     Indication: Asthma
  28. PREDNISONE [Concomitant]
     Active Substance: PREDNISONE
     Indication: Prophylaxis
  29. RABEPRAZOLE [Concomitant]
     Active Substance: RABEPRAZOLE
     Indication: Prophylaxis
     Dosage: 20 MG, DAILY
     Route: 048
  30. SULFATRIM [Concomitant]
     Active Substance: SULFAMETHOXAZOLE\TRIMETHOPRIM
     Indication: Prophylaxis
  31. EBASTINE [Concomitant]
     Active Substance: EBASTINE
     Indication: Product used for unknown indication
  32. EVENING PRIMROSE OIL\HERBALS [Concomitant]
     Active Substance: EVENING PRIMROSE OIL\HERBALS
     Indication: Product used for unknown indication

REACTIONS (55)
  - Arthralgia [Not Recovered/Not Resolved]
  - Asthenia [Not Recovered/Not Resolved]
  - Blood pressure diastolic abnormal [Not Recovered/Not Resolved]
  - Blood pressure fluctuation [Not Recovered/Not Resolved]
  - Body temperature decreased [Not Recovered/Not Resolved]
  - Bronchitis [Not Recovered/Not Resolved]
  - Dengue fever [Not Recovered/Not Resolved]
  - Dysmenorrhoea [Not Recovered/Not Resolved]
  - Ear infection [Not Recovered/Not Resolved]
  - Eye disorder [Not Recovered/Not Resolved]
  - Fatigue [Not Recovered/Not Resolved]
  - Fungal infection [Not Recovered/Not Resolved]
  - Gastric infection [Not Recovered/Not Resolved]
  - Gastrooesophageal reflux disease [Not Recovered/Not Resolved]
  - Heart rate decreased [Not Recovered/Not Resolved]
  - Hypotension [Not Recovered/Not Resolved]
  - Infusion related reaction [Not Recovered/Not Resolved]
  - Iron deficiency anaemia [Not Recovered/Not Resolved]
  - Joint swelling [Not Recovered/Not Resolved]
  - Malaise [Not Recovered/Not Resolved]
  - Middle insomnia [Not Recovered/Not Resolved]
  - Muscle spasms [Not Recovered/Not Resolved]
  - Nasopharyngitis [Not Recovered/Not Resolved]
  - Oropharyngeal pain [Not Recovered/Not Resolved]
  - Oxygen saturation decreased [Not Recovered/Not Resolved]
  - Pain in extremity [Not Recovered/Not Resolved]
  - Palpitations [Not Recovered/Not Resolved]
  - Presyncope [Not Recovered/Not Resolved]
  - Skin papilloma [Not Recovered/Not Resolved]
  - Somnolence [Not Recovered/Not Resolved]
  - Weight increased [Not Recovered/Not Resolved]
  - Weight decreased [Not Recovered/Not Resolved]
  - Pain [Not Recovered/Not Resolved]
  - Abdominal discomfort [Not Recovered/Not Resolved]
  - Abdominal pain [Not Recovered/Not Resolved]
  - Dizziness [Not Recovered/Not Resolved]
  - Nausea [Not Recovered/Not Resolved]
  - Drug ineffective [Not Recovered/Not Resolved]
  - Therapeutic product effect decreased [Not Recovered/Not Resolved]
  - Treatment failure [Not Recovered/Not Resolved]
  - Palpitations [Not Recovered/Not Resolved]
  - Arthropathy [Not Recovered/Not Resolved]
  - Blood pressure systolic abnormal [Not Recovered/Not Resolved]
  - Chest discomfort [Not Recovered/Not Resolved]
  - Cough [Not Recovered/Not Resolved]
  - Gastrointestinal disorder [Not Recovered/Not Resolved]
  - Heart rate increased [Not Recovered/Not Resolved]
  - Hypersensitivity [Not Recovered/Not Resolved]
  - Illness [Not Recovered/Not Resolved]
  - Viral infection [Not Recovered/Not Resolved]
  - Gastric ulcer [Unknown]
  - Mood swings [Unknown]
  - Injection site pain [Unknown]
  - Pigmentation disorder [Unknown]
  - Peripheral swelling [Unknown]
